FAERS Safety Report 14235194 (Version 1)
Quarter: 2017Q4

REPORT INFORMATION
  Report Type: Spontaneous
  Country: US (occurrence: US)
  Receive Date: 20171129
  Receipt Date: 20171129
  Transmission Date: 20180321
  Serious: No
  Sender: FDA-Public Use
  Company Number: US-LEADIANT BIOSCIENCES INC-2017STPI000157

PATIENT
  Sex: Male

DRUGS (8)
  1. PROCHLORPERAZINE. [Concomitant]
     Active Substance: PROCHLORPERAZINE
  2. PREDNISONE. [Concomitant]
     Active Substance: PREDNISONE
  3. ONDANSETRON [Concomitant]
     Active Substance: ONDANSETRON
  4. ASPIRIN                            /00002701/ [Concomitant]
     Active Substance: ASPIRIN
  5. MATULANE [Suspect]
     Active Substance: PROCARBAZINE HYDROCHLORIDE
     Indication: HODGKIN^S DISEASE
     Dosage: 150 UNK, UNK
     Dates: start: 20160920
  6. CARVEDILOL. [Concomitant]
     Active Substance: CARVEDILOL
  7. LOSARTAN. [Concomitant]
     Active Substance: LOSARTAN
  8. LEUKERAN [Concomitant]
     Active Substance: CHLORAMBUCIL

REACTIONS (2)
  - Nausea [Not Recovered/Not Resolved]
  - Malaise [Not Recovered/Not Resolved]
